FAERS Safety Report 22760034 (Version 5)
Quarter: 2023Q4

REPORT INFORMATION
  Report Type: Report from Study
  Country: DE (occurrence: None)
  Receive Date: 20230728
  Receipt Date: 20231001
  Transmission Date: 20240110
  Serious: Yes (Hospitalization)
  Sender: FDA-Public Use
  Company Number: DE-ROCHE-3394796

PATIENT
  Age: 67 Year
  Sex: Female

DRUGS (5)
  1. ATEZOLIZUMAB [Suspect]
     Active Substance: ATEZOLIZUMAB
     Indication: Bile duct cancer
     Dosage: DOSE BEFORE ONSET OF EVENT 840MG?DATE OF LAST ADMINISTRATION BEFORE ONSET OF EVENT 13/JUL/2023
     Route: 041
     Dates: start: 20220812
  2. BEVACIZUMAB [Suspect]
     Active Substance: BEVACIZUMAB
     Indication: Bile duct cancer
     Dosage: DATE OF LAST ADMINISTRATION BEFORE ONSET OF EVENT 02/JUN/2023
     Route: 042
     Dates: start: 20220812
  3. LEUCOVORIN [Concomitant]
     Active Substance: LEUCOVORIN\LEUCOVORIN CALCIUM
     Indication: Bile duct cancer
     Dosage: D,L RACEMIC FORM
     Route: 042
     Dates: start: 20220812
  4. FLUOROURACIL [Concomitant]
     Active Substance: FLUOROURACIL
     Indication: Bile duct cancer
     Route: 042
     Dates: start: 20220812
  5. OXALIPLATIN [Concomitant]
     Active Substance: OXALIPLATIN
     Indication: Bile duct cancer
     Route: 042
     Dates: start: 20220812

REACTIONS (1)
  - Anaemia [Recovered/Resolved]

NARRATIVE: CASE EVENT DATE: 20230726
